FAERS Safety Report 20818893 (Version 1)
Quarter: 2022Q2

REPORT INFORMATION
  Report Type: Spontaneous
  Country: None (occurrence: A1)
  Receive Date: 20220512
  Receipt Date: 20220512
  Transmission Date: 20220721
  Serious: Yes (Other)
  Sender: FDA-Public Use
  Company Number: A1-Avion Pharmaceuticals, LLC-2128718

PATIENT

DRUGS (1)
  1. DHIVY [Suspect]
     Active Substance: CARBIDOPA\LEVODOPA
     Indication: Product used for unknown indication
     Route: 050

REACTIONS (7)
  - Ventricular tachycardia [Unknown]
  - Gastrointestinal ulcer [Unknown]
  - Ileus paralytic [Unknown]
  - Pneumoperitoneum [Unknown]
  - Infection [Unknown]
  - Peripheral sensory neuropathy [Unknown]
  - Substance-induced psychotic disorder [Unknown]
